FAERS Safety Report 12799624 (Version 1)
Quarter: 2016Q3

REPORT INFORMATION
  Report Type: Spontaneous
  Country: FR (occurrence: FR)
  Receive Date: 20160930
  Receipt Date: 20160930
  Transmission Date: 20161109
  Serious: Yes (Other)
  Sender: FDA-Public Use
  Company Number: FR-AMGEN-FRASP2016133986

PATIENT
  Sex: Female

DRUGS (3)
  1. VP 16 [Concomitant]
     Active Substance: ETOPOSIDE
     Indication: ENDOCRINE NEOPLASM
     Dosage: UNK
  2. NEULASTA [Suspect]
     Active Substance: PEGFILGRASTIM
     Indication: PRODUCT USED FOR UNKNOWN INDICATION
     Dosage: UNK
     Route: 065
  3. CARBOPLATIN. [Concomitant]
     Active Substance: CARBOPLATIN
     Indication: ENDOCRINE NEOPLASM
     Dosage: UNK

REACTIONS (1)
  - Pure white cell aplasia [Recovered/Resolved]
